FAERS Safety Report 11183837 (Version 1)
Quarter: 2015Q2

REPORT INFORMATION
  Report Type: Spontaneous
  Country: US (occurrence: None)
  Receive Date: 20150611
  Receipt Date: 20150611
  Transmission Date: 20150821
  Serious: Yes (Hospitalization)
  Sender: FDA-Public Use
  Company Number: None

PATIENT
  Age: 57 Year
  Sex: Female

DRUGS (8)
  1. WARFARIN [Concomitant]
     Active Substance: WARFARIN
  2. PREDNISONE. [Concomitant]
     Active Substance: PREDNISONE
  3. METOPROLOL [Concomitant]
     Active Substance: METOPROLOL
  4. BUPROPION [Concomitant]
     Active Substance: BUPROPION
  5. OMEPRAZOLE. [Concomitant]
     Active Substance: OMEPRAZOLE
  6. GABAPENTIN. [Concomitant]
     Active Substance: GABAPENTIN
  7. POMALYST [Suspect]
     Active Substance: POMALIDOMIDE
     Indication: PLASMA CELL MYELOMA
     Route: 048
     Dates: start: 201312
  8. LEVOTHYROXINE [Concomitant]
     Active Substance: LEVOTHYROXINE

REACTIONS (4)
  - Cough [None]
  - Febrile neutropenia [None]
  - Wheezing [None]
  - Oropharyngeal pain [None]

NARRATIVE: CASE EVENT DATE: 20150531
